FAERS Safety Report 17908428 (Version 3)
Quarter: 2020Q3

REPORT INFORMATION
  Report Type: Report from Study
  Country: None (occurrence: US)
  Receive Date: 20200617
  Receipt Date: 20200816
  Transmission Date: 20201103
  Serious: Yes (Other)
  Sender: FDA-Public Use
  Company Number: US-ABBVIE-20K-163-3447237-00

PATIENT
  Age: 55 Year
  Sex: Female
  Weight: 64.47 kg

DRUGS (1)
  1. RINVOQ [Suspect]
     Active Substance: UPADACITINIB
     Indication: RHEUMATOID ARTHRITIS
     Route: 048
     Dates: start: 201912

REACTIONS (5)
  - Ligament rupture [Recovering/Resolving]
  - Tendon injury [Recovered/Resolved]
  - Osteoarthritis [Not Recovered/Not Resolved]
  - Skin laceration [Recovered/Resolved]
  - Pain [Not Recovered/Not Resolved]

NARRATIVE: CASE EVENT DATE: 20200528
